FAERS Safety Report 20310781 (Version 2)
Quarter: 2022Q1

REPORT INFORMATION
  Report Type: Spontaneous
  Country: JP (occurrence: JP)
  Receive Date: 20220107
  Receipt Date: 20220131
  Transmission Date: 20220424
  Serious: Yes (Hospitalization)
  Sender: FDA-Public Use
  Company Number: JP-PFIZER INC-202200010893

PATIENT
  Age: 80 Year
  Sex: Male

DRUGS (1)
  1. ESTRAMUSTINE [Suspect]
     Active Substance: ESTRAMUSTINE
     Dosage: UNK
     Route: 048

REACTIONS (2)
  - Anaemia [Recovered/Resolved]
  - Oedema [Recovered/Resolved]

NARRATIVE: CASE EVENT DATE: 20211227
